FAERS Safety Report 22902970 (Version 3)
Quarter: 2023Q4

REPORT INFORMATION
  Report Type: Spontaneous
  Country: US (occurrence: US)
  Receive Date: 20230904
  Receipt Date: 20231004
  Transmission Date: 20240110
  Serious: No
  Sender: FDA-Public Use
  Company Number: US-JNJFOC-20230857531

PATIENT
  Sex: Male

DRUGS (4)
  1. RISPERDAL CONSTA [Suspect]
     Active Substance: RISPERIDONE
     Indication: Product used for unknown indication
     Route: 065
  2. RISPERDAL CONSTA [Suspect]
     Active Substance: RISPERIDONE
     Route: 065
     Dates: start: 20230823
  3. RISPERDAL CONSTA [Suspect]
     Active Substance: RISPERIDONE
  4. RISPERDAL CONSTA [Suspect]
     Active Substance: RISPERIDONE

REACTIONS (8)
  - Suspected product contamination [Unknown]
  - Inflammation [Unknown]
  - Pain [Unknown]
  - Chest pain [Unknown]
  - Neuralgia [Unknown]
  - Blood prolactin abnormal [Unknown]
  - Gaucher^s disease [Unknown]
  - Breast enlargement [Unknown]

NARRATIVE: CASE EVENT DATE: 20230801
